FAERS Safety Report 7970308-1 (Version None)
Quarter: 2011Q4

REPORT INFORMATION
  Report Type: 
  Country: None (occurrence: None)
  Receive Date: 20111212
  Receipt Date: 20111201
  Transmission Date: 20120403
  Serious: Yes (Hospitalization)
  Sender: FDA-Public Use
  Company Number: GB-BAXTER-2011BH033115

PATIENT
  Age: 32 Month
  Sex: Female
  Weight: 12 kg

DRUGS (25)
  1. IFOSFAMIDE [Suspect]
     Route: 042
     Dates: start: 20110712
  2. IFOSFAMIDE [Suspect]
     Route: 042
     Dates: start: 20110712
  3. MESNA [Suspect]
     Route: 042
     Dates: start: 20110712
  4. VINCRISTINE SULFATE [Suspect]
     Indication: SARCOMA METASTATIC
     Route: 042
     Dates: start: 20110712
  5. ONDANSETRON [Concomitant]
     Indication: PRODUCT USED FOR UNKNOWN INDICATION
     Route: 048
     Dates: start: 20110901, end: 20110907
  6. ACETAMINOPHEN [Concomitant]
     Indication: PRODUCT USED FOR UNKNOWN INDICATION
     Route: 048
  7. LEVOMEPROMAZINE [Concomitant]
     Indication: PRODUCT USED FOR UNKNOWN INDICATION
     Route: 042
     Dates: start: 20110713
  8. DOCUSATE [Concomitant]
     Indication: PRODUCT USED FOR UNKNOWN INDICATION
     Route: 048
     Dates: start: 20110714
  9. MOVIPREP [Concomitant]
     Route: 065
     Dates: start: 20110901, end: 20110907
  10. MESNA [Suspect]
     Route: 042
     Dates: start: 20110712
  11. DACTINOMYCIN [Suspect]
     Route: 042
     Dates: start: 20110712
  12. FLUCONAZOLE [Concomitant]
     Indication: PRODUCT USED FOR UNKNOWN INDICATION
     Route: 042
  13. EMOLLIENTS AND PROTECTIVES [Concomitant]
     Indication: PRODUCT USED FOR UNKNOWN INDICATION
     Route: 061
     Dates: start: 20111012
  14. MESNA [Suspect]
     Indication: SARCOMA METASTATIC
     Route: 042
     Dates: start: 20110712
  15. MOVIPREP [Concomitant]
     Indication: PRODUCT USED FOR UNKNOWN INDICATION
     Route: 065
     Dates: start: 20110820
  16. IFOSFAMIDE [Suspect]
     Indication: SARCOMA METASTATIC
     Route: 042
     Dates: start: 20110712
  17. BEVACIZUMAB [Suspect]
     Indication: SARCOMA METASTATIC
     Route: 042
     Dates: start: 20110712
  18. DOXORUBICIN HCL [Suspect]
     Route: 042
     Dates: start: 20110712
  19. DACTINOMYCIN [Suspect]
     Indication: SARCOMA METASTATIC
     Route: 042
     Dates: start: 20110712
  20. ONDANSETRON [Concomitant]
     Route: 048
     Dates: start: 20110817
  21. VINCRISTINE SULFATE [Suspect]
     Route: 042
     Dates: start: 20110712
  22. DOXORUBICIN HCL [Suspect]
     Indication: SARCOMA METASTATIC
     Route: 042
     Dates: start: 20110712
  23. DACTINOMYCIN [Suspect]
     Route: 042
     Dates: start: 20110712
  24. COTRIM [Concomitant]
     Indication: PRODUCT USED FOR UNKNOWN INDICATION
     Route: 048
     Dates: start: 20110716
  25. MESNA [Suspect]
     Route: 042
     Dates: start: 20110712

REACTIONS (4)
  - EPISTAXIS [None]
  - FUNGAEMIA [None]
  - MUCOSAL INFLAMMATION [None]
  - FEBRILE NEUTROPENIA [None]
